FAERS Safety Report 4838622-6 (Version None)
Quarter: 2005Q4

REPORT INFORMATION
  Report Type: 
  Country: None (occurrence: None)
  Receive Date: 20051129
  Receipt Date: 20050801
  Transmission Date: 20060501
  Serious: No
  Sender: FDA-Public Use
  Company Number: US-GLAXOSMITHKLINE-A0568430A

PATIENT
  Age: 48 Year
  Sex: Female

DRUGS (2)
  1. COMMIT [Suspect]
     Dates: start: 20050731
  2. NICODERM CQ [Suspect]

REACTIONS (5)
  - DYSPEPSIA [None]
  - EUPHORIC MOOD [None]
  - GLOSSODYNIA [None]
  - HICCUPS [None]
  - THROAT IRRITATION [None]
